FAERS Safety Report 7969471-8 (Version None)
Quarter: 2011Q4

REPORT INFORMATION
  Report Type: 
  Country: None (occurrence: None)
  Receive Date: 20111212
  Receipt Date: 20111205
  Transmission Date: 20120403
  Serious: Yes (Hospitalization)
  Sender: FDA-Public Use
  Company Number: US-BIOGENIDEC-2011BI034539

PATIENT
  Age: 66 Year
  Sex: Female

DRUGS (2)
  1. AVONEX [Suspect]
     Indication: MULTIPLE SCLEROSIS
     Route: 030
     Dates: start: 20110610
  2. AVONEX [Suspect]
     Route: 030
     Dates: start: 20110610

REACTIONS (11)
  - INTRACRANIAL ANEURYSM [None]
  - CERVICAL SPINAL STENOSIS [None]
  - RED BLOOD CELLS CSF POSITIVE [None]
  - FACIAL PAIN [None]
  - MULTIPLE SCLEROSIS RELAPSE [None]
  - FALL [None]
  - TREMOR [None]
  - BACK PAIN [None]
  - MUSCLE SPASMS [None]
  - BURNING SENSATION [None]
  - DYSPHAGIA [None]
